FAERS Safety Report 4608284-1 (Version None)
Quarter: 2005Q1

REPORT INFORMATION
  Report Type: 
  Country: None (occurrence: None)
  Receive Date: 20050311
  Receipt Date: 20050303
  Transmission Date: 20050727
  Serious: Yes (Life-Threatening)
  Sender: FDA-Public Use
  Company Number: K200500298

PATIENT
  Sex: Male

DRUGS (9)
  1. ALTACE [Suspect]
     Indication: CARDIAC FAILURE CONGESTIVE
     Dosage: 5 MG, QD, ORAL
     Route: 048
     Dates: end: 20050128
  2. ISOSORBIDE MONONITRATE [Concomitant]
  3. PHENYTOIN [Concomitant]
  4. GLICLAZIDE (GLICLAZIDE) [Concomitant]
  5. DIGOXIN [Concomitant]
  6. TAMSULOSIN (TAMSULOSIN) [Concomitant]
  7. SENNA (SENNA ALEXANDRINA) [Concomitant]
  8. FUROSEMIDE [Concomitant]
  9. METHOTREXATE [Concomitant]

REACTIONS (3)
  - CARDIAC ARREST [None]
  - HYPERKALAEMIA [None]
  - RENAL FAILURE ACUTE [None]
